FAERS Safety Report 23154967 (Version 1)
Quarter: 2023Q4

REPORT INFORMATION
  Report Type: Spontaneous
  Country: US (occurrence: None)
  Receive Date: 20231107
  Receipt Date: 20231107
  Transmission Date: 20240110
  Serious: Yes (Other)
  Sender: FDA-Public Use
  Company Number: None

PATIENT
  Age: 81 Year
  Sex: Female
  Weight: 50.85 kg

DRUGS (5)
  1. REFRESH OPTIVE [Suspect]
     Active Substance: CARBOXYMETHYLCELLULOSE SODIUM\GLYCERIN
     Indication: Dry eye
     Dosage: OTHER QUANTITY : 1 1 VIAL;?FREQUENCY : AT BEDTIME;?
     Route: 047
     Dates: start: 20231105, end: 20231107
  2. GABAPENTIN [Concomitant]
     Active Substance: GABAPENTIN
  3. Liquid multivitamin [Concomitant]
  4. CALCIUM\VITAMIN D [Concomitant]
     Active Substance: CALCIUM\VITAMIN D
  5. liquid magnesium [Concomitant]

REACTIONS (3)
  - Vision blurred [None]
  - Dry eye [None]
  - Ocular discomfort [None]

NARRATIVE: CASE EVENT DATE: 20231107
